FAERS Safety Report 8525098-0 (Version None)
Quarter: 2012Q3

REPORT INFORMATION
  Report Type: 
  Country: None (occurrence: None)
  Receive Date: 20120720
  Receipt Date: 20120713
  Transmission Date: 20120928
  Serious: Yes (Other)
  Sender: FDA-Public Use
  Company Number: US-TEVA-348223USA

PATIENT
  Sex: Female
  Weight: 81.72 kg

DRUGS (1)
  1. COPAXONE [Suspect]
     Indication: MULTIPLE SCLEROSIS
     Dosage: 20 MILLIGRAM;
     Route: 058

REACTIONS (4)
  - KIDNEY FIBROSIS [None]
  - DRUG WITHDRAWAL SYNDROME [None]
  - MUSCLE SPASMS [None]
  - ANXIETY [None]
